FAERS Safety Report 25591324 (Version 1)
Quarter: 2025Q3

REPORT INFORMATION
  Report Type: Spontaneous
  Country: US (occurrence: None)
  Receive Date: 20250721
  Receipt Date: 20250721
  Transmission Date: 20251020
  Serious: Yes (Other)
  Sender: FDA-CTU
  Company Number: None

PATIENT
  Age: 75 Year
  Sex: Female
  Weight: 49.9 kg

DRUGS (6)
  1. ATORVASTATIN [Suspect]
     Active Substance: ATORVASTATIN
     Indication: Blood cholesterol increased
     Route: 048
     Dates: start: 20250701, end: 20250711
  2. ASPIRIN [Suspect]
     Active Substance: ASPIRIN
  3. NEBIVOLOL 2.5 ONCE DAILY [Concomitant]
  4. CENTRUM ADULT 50+ SILVER VITAMIN SUPPLEMENT [Concomitant]
  5. CITRACAL + D3 [Concomitant]
  6. CALCIUM CITRATE SUPPLEMENT [Concomitant]

REACTIONS (4)
  - Nausea [None]
  - Pain in extremity [None]
  - Neuropathy peripheral [None]
  - Contusion [None]

NARRATIVE: CASE EVENT DATE: 20250710
